FAERS Safety Report 23504552 (Version 1)
Quarter: 2024Q1

REPORT INFORMATION
  Report Type: Spontaneous
  Country: US (occurrence: US)
  Receive Date: 20240209
  Receipt Date: 20240209
  Transmission Date: 20240410
  Serious: Yes (Death, Hospitalization, Other)
  Sender: FDA-Public Use
  Company Number: US-AMGEN-USASP2024021970

PATIENT
  Age: 66 Year
  Sex: Female

DRUGS (5)
  1. RITUXIMAB [Suspect]
     Active Substance: RITUXIMAB
     Indication: Granulomatosis with polyangiitis
     Dosage: 1 GRAM INFUSION OF RITUXIMAB ON DAY 3 OF ADMISSION
     Route: 065
  2. METHYLPREDNISOLONE [Concomitant]
     Active Substance: METHYLPREDNISOLONE
     Indication: Granulomatosis with polyangiitis
     Dosage: 125 MILLIGRAM, BID FOR 5 DAYS
     Route: 042
  3. METHYLPREDNISOLONE [Concomitant]
     Active Substance: METHYLPREDNISOLONE
     Dosage: 250 MILLIGRAM, BID
     Route: 042
  4. MYCOPHENOLATE MOFETIL [Concomitant]
     Active Substance: MYCOPHENOLATE MOFETIL
     Indication: Granulomatosis with polyangiitis
     Dosage: 1 GRAM, QD
     Route: 065
  5. MYCOPHENOLATE MOFETIL [Concomitant]
     Active Substance: MYCOPHENOLATE MOFETIL
     Dosage: 1.5 GRAM, BID
     Route: 065

REACTIONS (5)
  - Death [Fatal]
  - Granulomatosis with polyangiitis [Unknown]
  - Haemophagocytic lymphohistiocytosis [Unknown]
  - General physical health deterioration [Unknown]
  - Therapy non-responder [Unknown]
